FAERS Safety Report 9401275 (Version 1)
Quarter: 2013Q3

REPORT INFORMATION
  Report Type: Report from Study
  Country: JP (occurrence: JP)
  Receive Date: 20130715
  Receipt Date: 20130715
  Transmission Date: 20140515
  Serious: Yes (Hospitalization, Other)
  Sender: FDA-Public Use
  Company Number: JP-ABBOTT-13P-087-1103708-00

PATIENT
  Age: 84 Year
  Sex: Female

DRUGS (7)
  1. HUMIRA [Suspect]
     Indication: RHEUMATOID ARTHRITIS
     Route: 058
     Dates: start: 20100313, end: 20121203
  2. LANSOPRAZOLE [Concomitant]
     Indication: GASTRITIS PROPHYLAXIS
  3. GLIMEPIRIDE [Concomitant]
     Indication: PRODUCT USED FOR UNKNOWN INDICATION
     Dates: end: 20130102
  4. PIOGLITAZONE HYDROCHLORIDE [Concomitant]
     Indication: PRODUCT USED FOR UNKNOWN INDICATION
     Dates: end: 20130102
  5. BENIDIPINE HYDROCHLORIDE [Concomitant]
     Indication: PRODUCT USED FOR UNKNOWN INDICATION
     Dates: end: 20130102
  6. LOSARTAN POTASSIUM [Concomitant]
     Indication: PRODUCT USED FOR UNKNOWN INDICATION
  7. PLAUNOTOL [Concomitant]
     Indication: GASTRITIS PROPHYLAXIS
     Dates: end: 20130102

REACTIONS (4)
  - Dizziness [Unknown]
  - Dyslalia [Unknown]
  - Cerebral infarction [Recovered/Resolved with Sequelae]
  - Nasopharyngitis [Unknown]
